FAERS Safety Report 6890316-1 (Version None)
Quarter: 2010Q3

REPORT INFORMATION
  Report Type: 
  Country: None (occurrence: None)
  Receive Date: 20100730
  Receipt Date: 20080929
  Transmission Date: 20110219
  Serious: Yes (Other)
  Sender: FDA-Public Use
  Company Number: US-PFIZER INC-2008082477

PATIENT
  Sex: Male
  Weight: 73.9 kg

DRUGS (4)
  1. LIPITOR [Suspect]
     Indication: BLOOD CHOLESTEROL
     Dosage: EVERY DAY
     Route: 048
     Dates: start: 20030101
  2. COREG [Concomitant]
  3. WARFARIN SODIUM [Concomitant]
  4. ACETAMINOPHEN [Concomitant]

REACTIONS (7)
  - ABDOMINAL DISCOMFORT [None]
  - ATRIAL FIBRILLATION [None]
  - DECREASED APPETITE [None]
  - DYSGEUSIA [None]
  - TACHYCARDIA [None]
  - WEIGHT DECREASED [None]
  - WRONG TECHNIQUE IN DRUG USAGE PROCESS [None]
